FAERS Safety Report 14751086 (Version 5)
Quarter: 2019Q2

REPORT INFORMATION
  Report Type: Spontaneous
  Country: US (occurrence: US)
  Receive Date: 20180412
  Receipt Date: 20190418
  Transmission Date: 20190711
  Serious: Yes (Other)
  Sender: FDA-Public Use
  Company Number: US-ASTRAZENECA-2018SE43607

PATIENT
  Age: 804 Month
  Sex: Male
  Weight: 112.8 kg

DRUGS (37)
  1. CLONAZEPAM. [Concomitant]
     Active Substance: CLONAZEPAM
  2. SPIRONOLACTONE. [Concomitant]
     Active Substance: SPIRONOLACTONE
  3. NEXIUM [Suspect]
     Active Substance: ESOMEPRAZOLE MAGNESIUM
     Route: 048
     Dates: start: 20080228, end: 20160224
  4. SEROQUEL [Concomitant]
     Active Substance: QUETIAPINE FUMARATE
  5. ZOLPIDEM [Concomitant]
     Active Substance: ZOLPIDEM\ZOLPIDEM TARTRATE
  6. NEBIVOLOL. [Concomitant]
     Active Substance: NEBIVOLOL
  7. NEXIUM [Suspect]
     Active Substance: ESOMEPRAZOLE MAGNESIUM
     Route: 048
     Dates: start: 200802, end: 201609
  8. NEXIUM [Suspect]
     Active Substance: ESOMEPRAZOLE MAGNESIUM
     Route: 048
     Dates: start: 20080228, end: 20160916
  9. PROTONIX [Suspect]
     Active Substance: PANTOPRAZOLE SODIUM
     Route: 065
     Dates: start: 200802, end: 201609
  10. ZOLPIDEM [Concomitant]
     Active Substance: ZOLPIDEM\ZOLPIDEM TARTRATE
  11. DILTIAZEM. [Concomitant]
     Active Substance: DILTIAZEM
  12. METRONIDAZOLE. [Concomitant]
     Active Substance: METRONIDAZOLE
  13. XANAX [Concomitant]
     Active Substance: ALPRAZOLAM
  14. NEXIUM 24HR [Suspect]
     Active Substance: ESOMEPRAZOLE MAGNESIUM
     Route: 048
     Dates: start: 199501, end: 201712
  15. CYMBALTA [Concomitant]
     Active Substance: DULOXETINE HYDROCHLORIDE
  16. PRILOSEC [Suspect]
     Active Substance: OMEPRAZOLE MAGNESIUM
     Route: 048
     Dates: start: 199501, end: 201712
  17. DEXILANT [Suspect]
     Active Substance: DEXLANSOPRAZOLE
     Route: 065
     Dates: start: 199501, end: 201712
  18. NEXIUM [Suspect]
     Active Substance: ESOMEPRAZOLE MAGNESIUM
     Route: 048
     Dates: start: 199501, end: 201712
  19. BECLOMETHASONE DIPROPIONATE [Concomitant]
     Active Substance: BECLOMETHASONE DIPROPIONATE
  20. ALPRAZOLAM. [Concomitant]
     Active Substance: ALPRAZOLAM
  21. AMBIEN [Concomitant]
     Active Substance: ZOLPIDEM TARTRATE
  22. DIAZEPAM. [Concomitant]
     Active Substance: DIAZEPAM
  23. CLONAZEPAM. [Concomitant]
     Active Substance: CLONAZEPAM
  24. NASONEX [Concomitant]
     Active Substance: MOMETASONE FUROATE
  25. NEXIUM [Suspect]
     Active Substance: ESOMEPRAZOLE MAGNESIUM
     Route: 048
     Dates: end: 20170929
  26. PREVACID [Suspect]
     Active Substance: LANSOPRAZOLE
     Route: 065
     Dates: start: 199501, end: 201712
  27. MIRTAZAPINE. [Concomitant]
     Active Substance: MIRTAZAPINE
  28. TOCOPHEROL [Concomitant]
     Active Substance: TOCOPHEROL
  29. ATORVASTATIN [Concomitant]
     Active Substance: ATORVASTATIN
  30. LIPITOR [Concomitant]
     Active Substance: ATORVASTATIN CALCIUM
  31. PRILOSEC OTC [Suspect]
     Active Substance: OMEPRAZOLE MAGNESIUM
     Route: 048
     Dates: start: 199501, end: 201712
  32. PREVACID 24 HR [Suspect]
     Active Substance: LANSOPRAZOLE
     Route: 065
     Dates: start: 199501, end: 201712
  33. PROTONIX [Suspect]
     Active Substance: PANTOPRAZOLE SODIUM
     Route: 065
     Dates: start: 199501, end: 201712
  34. WARFARIN [Concomitant]
     Active Substance: WARFARIN
  35. LORAZEPAM. [Concomitant]
     Active Substance: LORAZEPAM
  36. ONDANSETRON [Concomitant]
     Active Substance: ONDANSETRON
  37. CIALIS [Concomitant]
     Active Substance: TADALAFIL

REACTIONS (6)
  - Renal failure [Unknown]
  - Acute kidney injury [Not Recovered/Not Resolved]
  - Renal injury [Unknown]
  - Chronic kidney disease [Not Recovered/Not Resolved]
  - Renal disorder [Unknown]
  - Nephrogenic anaemia [Unknown]

NARRATIVE: CASE EVENT DATE: 201403
